FAERS Safety Report 15626943 (Version 4)
Quarter: 2019Q2

REPORT INFORMATION
  Report Type: Spontaneous
  Country: JP (occurrence: JP)
  Receive Date: 20181116
  Receipt Date: 20190405
  Transmission Date: 20190711
  Serious: Yes (Death, Other)
  Sender: FDA-Public Use
  Company Number: JP-PFIZER INC-2018472352

PATIENT
  Age: 56 Year
  Sex: Female
  Weight: 53 kg

DRUGS (11)
  1. NEORAL [Concomitant]
     Active Substance: CYCLOSPORINE
     Indication: DERMATOMYOSITIS
     Dosage: 25 MG, 2X/DAY
     Route: 048
     Dates: start: 20180208
  2. AMLODIPINE [Concomitant]
     Active Substance: AMLODIPINE BESYLATE
     Indication: HYPERTENSION
     Dosage: 2.5 MG, 1X/DAY
     Route: 048
     Dates: start: 20180618
  3. SAMTIREL [Concomitant]
     Active Substance: ATOVAQUONE
     Indication: BLOOD BETA-D-GLUCAN INCREASED
     Dosage: 2 DF, 1X/DAY
     Route: 048
     Dates: start: 20180314
  4. ALFACALCIDOL [Concomitant]
     Active Substance: ALFACALCIDOL
     Indication: OSTEOPOROSIS PROPHYLAXIS
     Dosage: 0.5 UG, 1X/DAY
     Route: 048
  5. XELJANZ [Suspect]
     Active Substance: TOFACITINIB CITRATE
     Indication: DERMATOMYOSITIS
     Dosage: 5 MG, 2X/DAY
     Route: 048
     Dates: start: 20180405
  6. MAGNESIUM OXIDE. [Concomitant]
     Active Substance: MAGNESIUM OXIDE
     Indication: CONSTIPATION
     Dosage: 330 MG, 3X/DAY
     Route: 048
     Dates: start: 20171110
  7. PREDNISOLONE. [Concomitant]
     Active Substance: PREDNISOLONE
     Indication: DERMATOMYOSITIS
     Dosage: 3 MG, 1X/DAY
     Route: 048
     Dates: start: 20180120
  8. PARIET [Concomitant]
     Active Substance: RABEPRAZOLE SODIUM
     Indication: PROPHYLAXIS AGAINST GASTROINTESTINAL ULCER
     Dosage: 10 MG, 1X/DAY
     Dates: start: 20171128
  9. BENET [Concomitant]
     Active Substance: RISEDRONATE SODIUM
     Indication: OSTEOPOROSIS PROPHYLAXIS
     Dosage: 75 MG, MONTHLY
     Route: 048
     Dates: start: 20180408
  10. BROTIZOLAM [Concomitant]
     Active Substance: BROTIZOLAM
     Indication: INSOMNIA
     Dosage: 0.25 MG, 1X/DAY
     Route: 048
     Dates: start: 20180303
  11. LOCHOL [FLUVASTATIN SODIUM] [Concomitant]
     Indication: DYSLIPIDAEMIA
     Dosage: 20 MG, 1X/DAY
     Route: 048
     Dates: start: 20180521

REACTIONS (6)
  - Completed suicide [Fatal]
  - Product use in unapproved indication [Unknown]
  - Back pain [Not Recovered/Not Resolved]
  - Paraesthesia oral [Not Recovered/Not Resolved]
  - Condition aggravated [Not Recovered/Not Resolved]
  - Arthralgia [Not Recovered/Not Resolved]

NARRATIVE: CASE EVENT DATE: 201810
